FAERS Safety Report 9369536 (Version 1)
Quarter: 2013Q2

REPORT INFORMATION
  Report Type: Spontaneous
  Country: US (occurrence: US)
  Receive Date: 20130626
  Receipt Date: 20130626
  Transmission Date: 20140414
  Serious: No
  Sender: FDA-Public Use
  Company Number: US-PFIZER INC-2013188083

PATIENT
  Age: 52 Year
  Sex: Female
  Weight: 56.69 kg

DRUGS (1)
  1. ADVIL [Suspect]
     Indication: BACK PAIN
     Dosage: 200 MG, TWO TO THREE TIMES OR MAY BE ONCE A DAY

REACTIONS (2)
  - Dysgeusia [Not Recovered/Not Resolved]
  - Oral discomfort [Recovering/Resolving]
